FAERS Safety Report 9338909 (Version 3)
Quarter: 2013Q3

REPORT INFORMATION
  Report Type: Spontaneous
  Country: JP (occurrence: JP)
  Receive Date: 20130610
  Receipt Date: 20130710
  Transmission Date: 20140515
  Serious: No
  Sender: FDA-Public Use
  Company Number: JP-PFIZER INC-2013174440

PATIENT
  Age: 82 Year
  Sex: Male

DRUGS (9)
  1. CHAMPIX [Suspect]
     Dosage: UNK
     Dates: start: 20130405
  2. ATARAX [Suspect]
     Dosage: UNK
     Dates: start: 20130606
  3. JANUVIA [Suspect]
     Dosage: UNK
  4. UNISIA [Suspect]
     Dosage: UNK
  5. TAKEPRON [Suspect]
     Dosage: UNK
  6. MYSLEE [Suspect]
     Dosage: UNK
  7. MAGLAX [Suspect]
     Dosage: UNK
     Dates: start: 20130514
  8. REMICUT [Concomitant]
     Dosage: UNK
  9. OXATOMIDE [Concomitant]
     Dosage: UNK

REACTIONS (4)
  - Pruritus [Unknown]
  - Blood pressure increased [Unknown]
  - Blood glucose increased [Unknown]
  - Constipation [Unknown]
